FAERS Safety Report 16514293 (Version 1)
Quarter: 2019Q3

REPORT INFORMATION
  Report Type: Spontaneous
  Country: US (occurrence: US)
  Receive Date: 20190702
  Receipt Date: 20190702
  Transmission Date: 20191004
  Serious: No
  Sender: FDA-Public Use
  Company Number: PHEH2019US027531

PATIENT
  Sex: Female

DRUGS (1)
  1. OMNITROPE [Suspect]
     Active Substance: SOMATROPIN
     Indication: IN VITRO FERTILISATION
     Dosage: 0.5 ML, QD
     Route: 065

REACTIONS (2)
  - Incorrect dose administered [Unknown]
  - Product physical issue [Unknown]
